FAERS Safety Report 5075081-5 (Version None)
Quarter: 2006Q3

REPORT INFORMATION
  Report Type: 
  Country: None (occurrence: None)
  Receive Date: 20060809
  Receipt Date: 20060726
  Transmission Date: 20061208
  Serious: Yes (Hospitalization)
  Sender: FDA-Public Use
  Company Number: SEWYE362526JUL06

PATIENT
  Sex: Female

DRUGS (4)
  1. ENBREL [Suspect]
     Indication: DRUG USE FOR UNKNOWN INDICATION
     Route: 058
     Dates: end: 20060304
  2. PREDNISOLONE [Concomitant]
  3. NAPROSYN [Concomitant]
  4. METOPROLOL SUCCINATE [Concomitant]

REACTIONS (3)
  - SEPSIS [None]
  - TOXIC SHOCK SYNDROME STAPHYLOCOCCAL [None]
  - WOUND INFECTION STAPHYLOCOCCAL [None]
